FAERS Safety Report 15393152 (Version 2)
Quarter: 2018Q3

REPORT INFORMATION
  Report Type: Spontaneous
  Country: JP (occurrence: JP)
  Receive Date: 20180917
  Receipt Date: 20180919
  Transmission Date: 20181010
  Serious: Yes (Other)
  Sender: FDA-Public Use
  Company Number: PHJP2018JP016280

PATIENT
  Age: 66 Year
  Sex: Female

DRUGS (1)
  1. NEORAL [Suspect]
     Active Substance: CYCLOSPORINE
     Indication: VOGT-KOYANAGI-HARADA SYNDROME
     Dosage: UNK
     Route: 048

REACTIONS (8)
  - Cataract [Unknown]
  - Visual acuity reduced [Unknown]
  - Hair colour changes [Unknown]
  - Birth mark [Unknown]
  - Product use in unapproved indication [Unknown]
  - Gait inability [Unknown]
  - Malaise [Unknown]
  - Fatigue [Unknown]
